FAERS Safety Report 7084338-8 (Version None)
Quarter: 2010Q4

REPORT INFORMATION
  Report Type: 
  Country: None (occurrence: None)
  Receive Date: 20101104
  Receipt Date: 20101028
  Transmission Date: 20110411
  Serious: Yes (Other)
  Sender: FDA-Public Use
  Company Number: BR-PFIZER INC-2010137904

PATIENT
  Age: 1 Year
  Sex: Female

DRUGS (1)
  1. ZYVOX [Suspect]
     Indication: SEPTIC SHOCK
     Dosage: UNK
     Route: 042
     Dates: start: 20101026

REACTIONS (2)
  - APPLICATION SITE INFECTION [None]
  - POOR VENOUS ACCESS [None]
